FAERS Safety Report 9424813 (Version 1)
Quarter: 2013Q3

REPORT INFORMATION
  Report Type: Spontaneous
  Country: SE (occurrence: None)
  Receive Date: 20130724
  Receipt Date: 20130724
  Transmission Date: 20140515
  Serious: Yes (Hospitalization, Disabling)
  Sender: FDA-Public Use
  Company Number: SYM-2013-06292

PATIENT
  Age: 39 Year
  Sex: Female

DRUGS (3)
  1. VOXRA [Suspect]
     Indication: PRODUCT USED FOR UNKNOWN INDICATION
     Dates: start: 201005, end: 201304
  2. CIPRALEX [Suspect]
     Indication: PRODUCT USED FOR UNKNOWN INDICATION
     Dates: start: 2006, end: 201305
  3. ANTIHISTAMINES (ANTIHISTAMINES) [Concomitant]

REACTIONS (3)
  - Anaphylactic reaction [None]
  - Weight decreased [None]
  - Paraesthesia [None]
